FAERS Safety Report 7270936-5 (Version None)
Quarter: 2011Q1

REPORT INFORMATION
  Report Type: 
  Country: None (occurrence: None)
  Receive Date: 20110121
  Receipt Date: 20110121
  Transmission Date: 20110831
  Serious: No
  Sender: FDA-Public Use
  Company Number: None

PATIENT
  Age: 27 Year
  Sex: Male
  Weight: 124.7392 kg

DRUGS (1)
  1. MAGNEVIST [Suspect]
     Indication: MULTIPLE SCLEROSIS
     Dosage: 20 ONCE IV BOLUS
     Route: 040
     Dates: start: 20110124, end: 20110124

REACTIONS (2)
  - SNEEZING [None]
  - NASAL CONGESTION [None]
